FAERS Safety Report 4859804-3 (Version None)
Quarter: 2005Q4

REPORT INFORMATION
  Report Type: 
  Country: None (occurrence: None)
  Receive Date: 20051215
  Receipt Date: 20051208
  Transmission Date: 20060501
  Serious: Yes (Other)
  Sender: FDA-Public Use
  Company Number: 200514938BCC

PATIENT
  Sex: Female

DRUGS (1)
  1. ASPIRIN [Suspect]
     Dosage: NI, ORAL
     Route: 048

REACTIONS (1)
  - BREAST CANCER [None]
